FAERS Safety Report 13229228 (Version 1)
Quarter: 2017Q1

REPORT INFORMATION
  Report Type: Report from Study
  Country: None (occurrence: DO)
  Receive Date: 20170214
  Receipt Date: 20170214
  Transmission Date: 20170428
  Serious: Yes (Death)
  Sender: FDA-Public Use
  Company Number: DO-ABBVIE-17K-279-1873156-00

PATIENT
  Age: 52 Year
  Sex: Female

DRUGS (1)
  1. HUMIRA [Suspect]
     Active Substance: ADALIMUMAB
     Indication: CROHN^S DISEASE
     Route: 058
     Dates: start: 2012, end: 20170111

REACTIONS (4)
  - Hepatomegaly [Fatal]
  - Influenza [Fatal]
  - Disease complication [Fatal]
  - Pneumonia [Fatal]

NARRATIVE: CASE EVENT DATE: 201701
